FAERS Safety Report 20143300 (Version 1)
Quarter: 2021Q4

REPORT INFORMATION
  Report Type: Spontaneous
  Country: JP (occurrence: JP)
  Receive Date: 20211203
  Receipt Date: 20211203
  Transmission Date: 20220304
  Serious: Yes (Other)
  Sender: FDA-Public Use
  Company Number: JP-SA-2021SA401415

PATIENT
  Sex: Female

DRUGS (1)
  1. DUPIXENT [Suspect]
     Active Substance: DUPILUMAB
     Indication: Chronic rhinosinusitis with nasal polyps
     Dosage: DAILY DOSE: 300 MG
     Route: 058
     Dates: start: 20201209

REACTIONS (2)
  - Diplegia [Not Recovered/Not Resolved]
  - Eosinophil percentage increased [Not Recovered/Not Resolved]

NARRATIVE: CASE EVENT DATE: 20211101
